FAERS Safety Report 9723770 (Version 1)
Quarter: 2013Q4

REPORT INFORMATION
  Report Type: Spontaneous
  Country: US (occurrence: US)
  Receive Date: 20131202
  Receipt Date: 20131202
  Transmission Date: 20140711
  Serious: Yes (Hospitalization)
  Sender: FDA-Public Use
  Company Number: US-PFIZER INC-2013338318

PATIENT
  Age: 67 Year
  Sex: Male

DRUGS (1)
  1. VFEND [Suspect]
     Dosage: 200 MG, UNK
     Dates: start: 20131029

REACTIONS (4)
  - Meningitis [Unknown]
  - Cerebrovascular accident [Unknown]
  - Cerebrovascular disorder [Unknown]
  - Limb discomfort [Unknown]
